FAERS Safety Report 20967082 (Version 2)
Quarter: 2022Q2

REPORT INFORMATION
  Report Type: Spontaneous
  Country: PT (occurrence: PT)
  Receive Date: 20220616
  Receipt Date: 20220629
  Transmission Date: 20220721
  Serious: Yes (Other)
  Sender: FDA-Public Use
  Company Number: PT-MYLANLABS-2022M1046039

PATIENT
  Age: 68 Year
  Sex: Male

DRUGS (2)
  1. ADALIMUMAB [Suspect]
     Active Substance: ADALIMUMAB
     Indication: Crohn^s disease
     Dosage: UNK
     Route: 065
  2. AZATHIOPRINE [Suspect]
     Active Substance: AZATHIOPRINE
     Indication: Crohn^s disease
     Dosage: UNK
     Route: 065

REACTIONS (2)
  - Drug ineffective [Unknown]
  - No adverse event [Unknown]
